FAERS Safety Report 4446649-1 (Version None)
Quarter: 2004Q3

REPORT INFORMATION
  Report Type: 
  Country: None (occurrence: None)
  Receive Date: 20040908
  Receipt Date: 20040823
  Transmission Date: 20050211
  Serious: Yes (Other)
  Sender: FDA-Public Use
  Company Number: 2004058868

PATIENT
  Age: 68 Year
  Sex: Male

DRUGS (4)
  1. ATARAX [Suspect]
     Indication: PRURITUS
     Dosage: 50 MG (25 MG, 2 IN 1 D), ORAL
     Route: 048
     Dates: end: 20040812
  2. TRIAZOLAM [Suspect]
     Indication: INSOMNIA
     Dosage: 0.25 MG, ORAL
     Route: 048
     Dates: start: 20030601, end: 20040812
  3. HOMOCHLORCYCLIZINE (HOMOCHLORCYCLIZINE) [Concomitant]
  4. OLOPATADINE HYDROCHLORIDE (OLOPATADINE HYDROCHLRIDE) [Concomitant]

REACTIONS (1)
  - LOSS OF CONSCIOUSNESS [None]
